FAERS Safety Report 4415682-8 (Version None)
Quarter: 2004Q2

REPORT INFORMATION
  Report Type: 
  Country: None (occurrence: None)
  Receive Date: 20040628
  Receipt Date: 20040127
  Transmission Date: 20050107
  Serious: Yes (Disabling)
  Sender: FDA-Public Use
  Company Number: 357447

PATIENT
  Age: 43 Year
  Sex: Female
  Weight: 77.1 kg

DRUGS (2)
  1. CELLCEPT [Suspect]
     Dosage: 1000 MG 2 PER DAY ORAL
     Route: 048
     Dates: start: 20040107
  2. PREDNISONE [Concomitant]

REACTIONS (1)
  - COLOUR BLINDNESS ACQUIRED [None]
